FAERS Safety Report 6042129-0 (Version None)
Quarter: 2009Q1

REPORT INFORMATION
  Report Type: 
  Country: None (occurrence: None)
  Receive Date: 20090116
  Receipt Date: 20090114
  Transmission Date: 20090719
  Serious: Yes (Death, Other)
  Sender: FDA-Public Use
  Company Number: PHBS2009CN00490

PATIENT
  Age: 32 Year
  Sex: Male

DRUGS (8)
  1. CYCLOSPORINE [Suspect]
     Indication: STEM CELL TRANSPLANT
     Dosage: UNK
     Dates: start: 20070401
  2. CYCLOSPORINE [Suspect]
     Indication: PROPHYLAXIS AGAINST GRAFT VERSUS HOST DISEASE
  3. MYCOPHENOLIC ACID [Suspect]
     Indication: STEM CELL TRANSPLANT
     Dosage: UNK
     Dates: start: 20070401
  4. MYCOPHENOLIC ACID [Suspect]
     Indication: PROPHYLAXIS AGAINST GRAFT VERSUS HOST DISEASE
  5. METHOTREXATE [Suspect]
     Indication: STEM CELL TRANSPLANT
     Dosage: UNK
     Dates: start: 20070401
  6. BUSULFAN [Concomitant]
  7. ARA-C [Concomitant]
  8. FLUDARABINE [Concomitant]

REACTIONS (19)
  - ABDOMINAL DISTENSION [None]
  - ACUTE GRAFT VERSUS HOST DISEASE [None]
  - CHEST DISCOMFORT [None]
  - CHRONIC GRAFT VERSUS HOST DISEASE [None]
  - COUGH [None]
  - DRY EYE [None]
  - DRY MOUTH [None]
  - DYSPNOEA [None]
  - HAEMORRHAGIC ASCITES [None]
  - HAEMOTHORAX [None]
  - INTERSTITIAL LUNG DISEASE [None]
  - PALPITATIONS [None]
  - PERITONEAL EFFUSION [None]
  - PLEURAL EFFUSION [None]
  - PYREXIA [None]
  - RASH [None]
  - RESPIRATORY FAILURE [None]
  - SEPTIC SHOCK [None]
  - TUBERCULOSIS [None]
